FAERS Safety Report 11987785 (Version 5)
Quarter: 2018Q4

REPORT INFORMATION
  Report Type: Spontaneous
  Country: US (occurrence: US)
  Receive Date: 20160202
  Receipt Date: 20181120
  Transmission Date: 20190204
  Serious: No
  Sender: FDA-Public Use
  Company Number: US-JNJFOC-20151211170

PATIENT
  Age: 69 Year
  Sex: Female

DRUGS (15)
  1. ZOLOFT [Concomitant]
     Active Substance: SERTRALINE HYDROCHLORIDE
     Indication: CRYING
     Dosage: 100 MG, QD
     Route: 048
  2. VERELAN [Concomitant]
     Active Substance: VERAPAMIL HYDROCHLORIDE
  3. FLONASE [Concomitant]
     Active Substance: FLUTICASONE PROPIONATE
     Indication: HYPERSENSITIVITY
     Route: 045
  4. IMBRUVICA [Suspect]
     Active Substance: IBRUTINIB
     Indication: CHRONIC LYMPHOCYTIC LEUKAEMIA
     Dosage: 280 MG, QD
     Route: 048
     Dates: start: 20140401
  5. LOTEMAX [Concomitant]
     Active Substance: LOTEPREDNOL ETABONATE
  6. ALBUTEROL. [Concomitant]
     Active Substance: ALBUTEROL
     Indication: ASTHMA
     Route: 055
  7. RESTASIS [Concomitant]
     Active Substance: CYCLOSPORINE
  8. TYLENOL [Concomitant]
     Active Substance: ACETAMINOPHEN
  9. IMBRUVICA [Suspect]
     Active Substance: IBRUTINIB
     Indication: CHRONIC LYMPHOCYTIC LEUKAEMIA
     Dosage: 420 MG, QD
     Route: 048
     Dates: start: 20140401
  10. IMBRUVICA [Suspect]
     Active Substance: IBRUTINIB
     Indication: CHRONIC LYMPHOCYTIC LEUKAEMIA
     Dosage: 420 MG, QD
     Route: 048
     Dates: start: 20160401
  11. ZOLOFT [Concomitant]
     Active Substance: SERTRALINE HYDROCHLORIDE
     Indication: ANXIETY
     Dosage: 100 MG, QD
     Route: 048
  12. TYLENOL PM [Concomitant]
     Active Substance: ACETAMINOPHEN\DIPHENHYDRAMINE
     Indication: INSOMNIA
     Dosage: UNK, Q PM
     Route: 048
  13. AMBIEN [Concomitant]
     Active Substance: ZOLPIDEM TARTRATE
     Indication: SLEEP DISORDER
     Dosage: UNK
     Dates: end: 2015
  14. IMMUNOGLOBULIN HUMAN NORMAL [Concomitant]
     Active Substance: HUMAN IMMUNOGLOBULIN G
  15. IMBRUVICA [Suspect]
     Active Substance: IBRUTINIB
     Indication: CHRONIC LYMPHOCYTIC LEUKAEMIA
     Dosage: 280 MG,QD
     Route: 048
     Dates: start: 201404

REACTIONS (17)
  - Computerised tomogram abnormal [Unknown]
  - Influenza [Recovering/Resolving]
  - Dyspepsia [Recovering/Resolving]
  - Fatigue [Not Recovered/Not Resolved]
  - Asthenia [Recovered/Resolved]
  - Stomatitis [Not Recovered/Not Resolved]
  - Eye disorder [Unknown]
  - Splenomegaly [Not Recovered/Not Resolved]
  - Decreased appetite [Not Recovered/Not Resolved]
  - Muscle spasms [Recovering/Resolving]
  - Platelet count decreased [Not Recovered/Not Resolved]
  - Dyspnoea exertional [Not Recovered/Not Resolved]
  - Dry eye [Unknown]
  - Sleep disorder [Not Recovered/Not Resolved]
  - Haemoptysis [Unknown]
  - Nausea [Not Recovered/Not Resolved]
  - Hypertension [Recovered/Resolved]

NARRATIVE: CASE EVENT DATE: 2015
